FAERS Safety Report 5411463-7 (Version None)
Quarter: 2007Q3

REPORT INFORMATION
  Report Type: 
  Country: None (occurrence: None)
  Receive Date: 20070810
  Receipt Date: 20070731
  Transmission Date: 20080115
  Serious: Yes (Life-Threatening, Hospitalization, Disabling)
  Sender: FDA-Public Use
  Company Number: GB-PFIZER INC-2006104080

PATIENT
  Age: 69 Year
  Sex: Female

DRUGS (8)
  1. LIPITOR [Suspect]
     Indication: HYPERCHOLESTEROLAEMIA
     Route: 048
     Dates: start: 20040619, end: 20060120
  2. CLARITHROMYCIN [Interacting]
  3. ACETYLSALICYLIC ACID SRT [Concomitant]
     Route: 065
  4. BISOPROLOL [Concomitant]
     Route: 065
  5. LANSOPRAZOLE [Concomitant]
     Route: 065
  6. NICORANDIL [Concomitant]
     Route: 065
     Dates: end: 20060123
  7. PLAVIX [Concomitant]
     Route: 065
  8. RAMIPRIL [Concomitant]
     Route: 065
     Dates: end: 20060122

REACTIONS (4)
  - DRUG INTERACTION [None]
  - LIVER FUNCTION TEST ABNORMAL [None]
  - RENAL FAILURE ACUTE [None]
  - RHABDOMYOLYSIS [None]
